FAERS Safety Report 9687260 (Version 1)
Quarter: 2013Q4

REPORT INFORMATION
  Report Type: Report from Study
  Country: CA (occurrence: CA)
  Receive Date: 20131114
  Receipt Date: 20131114
  Transmission Date: 20140711
  Serious: Yes (Other)
  Sender: FDA-Public Use
  Company Number: CA-ROCHE-1300551

PATIENT
  Sex: Male

DRUGS (3)
  1. PEGASYS [Suspect]
     Indication: CHRONIC HEPATITIS C
     Dosage: DOSE 180 MCG OR 0.5ML PRE-FILLED SYRINGE
     Route: 058
     Dates: start: 20130409
  2. COPEGUS [Suspect]
     Indication: CHRONIC HEPATITIS C
     Dosage: DOSE-35 TABLET/WEEK
     Route: 048
     Dates: start: 20130409
  3. VICTRELIS [Suspect]
     Indication: CHRONIC HEPATITIS C
     Route: 048

REACTIONS (1)
  - Hepatitis C virus test positive [Not Recovered/Not Resolved]
